FAERS Safety Report 7077306-3 (Version None)
Quarter: 2010Q4

REPORT INFORMATION
  Report Type: 
  Country: None (occurrence: None)
  Receive Date: 20101101
  Receipt Date: 20101020
  Transmission Date: 20110411
  Serious: Yes (Hospitalization, Other)
  Sender: FDA-Public Use
  Company Number: SE-CELGENEUS-150-C5013-10070021

PATIENT
  Sex: Female
  Weight: 99 kg

DRUGS (19)
  1. CC-5013 [Suspect]
     Indication: MULTIPLE MYELOMA
     Route: 048
     Dates: start: 20100706, end: 20100714
  2. CC-5013 [Suspect]
     Route: 048
     Dates: start: 20100526, end: 20100622
  3. CC-5013 [Suspect]
     Route: 048
     Dates: start: 20100331
  4. DEXAMETHASONE [Suspect]
     Indication: MULTIPLE MYELOMA
     Route: 065
     Dates: start: 20100526, end: 20100622
  5. DEXAMETHASONE [Suspect]
     Route: 065
     Dates: start: 20100331
  6. LOSARTAN/HYDROCHLOORTHIAZIDE [Concomitant]
     Indication: HYPERTENSION
     Dosage: 50/12.5MG
     Route: 048
     Dates: start: 20020101
  7. FUROSEMIDE [Concomitant]
     Route: 048
     Dates: start: 20100305, end: 20100630
  8. FUROSEMIDE [Concomitant]
     Indication: HYPERTENSION
     Route: 051
     Dates: start: 20100412, end: 20100412
  9. FUROSEMIDE [Concomitant]
     Route: 051
     Dates: start: 20100414, end: 20100622
  10. DALTEPARINATRIUM [Concomitant]
     Indication: THROMBOSIS PROPHYLAXIS
     Route: 058
     Dates: start: 20100331
  11. OMEPRAZOLE [Concomitant]
     Indication: GASTRITIS PROPHYLAXIS
     Route: 048
     Dates: start: 20100428, end: 20100706
  12. CALCIUM CARBONATE W/COLECALCIFEROL [Concomitant]
     Dosage: 500/400 IU
     Route: 048
     Dates: start: 20100414
  13. ESTRADIOL [Concomitant]
     Indication: MENOPAUSE
     Route: 067
     Dates: start: 20090924
  14. PARACETAMOL [Concomitant]
     Indication: PAIN
     Route: 048
     Dates: start: 20100331
  15. PENTACARINAT [Concomitant]
     Indication: PROPHYLAXIS
     Dates: start: 20100428, end: 20100705
  16. RETACRIT [Concomitant]
     Route: 058
     Dates: start: 20100622
  17. RINGER ACETATE [Concomitant]
     Indication: DEHYDRATION
     Route: 051
     Dates: start: 20100625, end: 20100625
  18. RINGER ACETATE [Concomitant]
     Route: 051
     Dates: start: 20100626, end: 20100626
  19. DALACIN [Concomitant]
     Indication: INFECTION
     Route: 048
     Dates: start: 20100629

REACTIONS (2)
  - GENERAL PHYSICAL HEALTH DETERIORATION [None]
  - SOFT TISSUE INFECTION [None]
